FAERS Safety Report 4773981-4 (Version None)
Quarter: 2005Q3

REPORT INFORMATION
  Report Type: 
  Country: None (occurrence: None)
  Receive Date: 20050919
  Receipt Date: 20050907
  Transmission Date: 20060218
  Serious: Yes (Other)
  Sender: FDA-Public Use
  Company Number: US-2005-018629

PATIENT

DRUGS (2)
  1. CAMPATH [Suspect]
  2. RITUXIMAB [Concomitant]

REACTIONS (3)
  - HEPATIC ENZYME INCREASED [None]
  - HISTOPLASMOSIS DISSEMINATED [None]
  - JAUNDICE CHOLESTATIC [None]
